FAERS Safety Report 8780579 (Version 2)
Quarter: 2012Q4

REPORT INFORMATION
  Report Type: 
  Country: US (occurrence: US)
  Receive Date: 20120913
  Receipt Date: 20121112
  Transmission Date: 20130627
  Serious: Yes (Hospitalization, Other)
  Sender: FDA-Public Use
  Company Number: US-BRISTOL-MYERS SQUIBB COMPANY-16931974

PATIENT
  Sex: Female

DRUGS (2)
  1. SPRYCEL [Suspect]
  2. ATIVAN [Concomitant]

REACTIONS (4)
  - Pleural effusion [Unknown]
  - Suicidal ideation [Unknown]
  - Depression [Unknown]
  - Blood pressure increased [Unknown]
